FAERS Safety Report 10082951 (Version 1)
Quarter: 2014Q2

REPORT INFORMATION
  Report Type: Spontaneous
  Country: US (occurrence: US)
  Receive Date: 20140417
  Receipt Date: 20140417
  Transmission Date: 20141212
  Serious: No
  Sender: FDA-Public Use
  Company Number: US-009507513-1404USA006550

PATIENT
  Age: 6 Decade
  Sex: Male

DRUGS (1)
  1. INTRONA [Suspect]
     Indication: MALIGNANT MELANOMA STAGE III
     Dosage: UNK, THREE TIMES PER WEEK
     Route: 058
     Dates: start: 201311

REACTIONS (1)
  - Pruritus [Unknown]
